FAERS Safety Report 17949705 (Version 1)
Quarter: 2020Q2

REPORT INFORMATION
  Report Type: Report from Study
  Country: US (occurrence: US)
  Receive Date: 20200625
  Receipt Date: 20200625
  Transmission Date: 20200714
  Serious: Yes (Hospitalization)
  Sender: FDA-Public Use
  Company Number: US-ACTELION-A-US2020-206193

PATIENT
  Age: 62 Year
  Sex: Female
  Weight: 95.24 kg

DRUGS (3)
  1. VELETRI [Suspect]
     Active Substance: EPOPROSTENOL
     Indication: PULMONARY ARTERIAL HYPERTENSION
     Dosage: 36.5 NG/KG, PER MIN
     Route: 042
  2. ELIQUIS [Concomitant]
     Active Substance: APIXABAN
  3. TADALAFIL. [Concomitant]
     Active Substance: TADALAFIL

REACTIONS (4)
  - Coronavirus test positive [Unknown]
  - Dyspnoea [Unknown]
  - Chest pain [Unknown]
  - Dyspnoea exertional [Not Recovered/Not Resolved]

NARRATIVE: CASE EVENT DATE: 202005
